FAERS Safety Report 9130860 (Version 2)
Quarter: 2013Q2

REPORT INFORMATION
  Report Type: Spontaneous
  Country: US (occurrence: US)
  Receive Date: 20130301
  Receipt Date: 20130611
  Transmission Date: 20140414
  Serious: Yes (Other)
  Sender: FDA-Public Use
  Company Number: US-BAYER-2013-023672

PATIENT
  Sex: Female

DRUGS (1)
  1. YAZ [Suspect]
     Indication: GENITAL HAEMORRHAGE
     Dosage: UNK
     Route: 048

REACTIONS (3)
  - Deep vein thrombosis [None]
  - Epilepsy [None]
  - Ovarian cyst [None]
